FAERS Safety Report 6239442-0 (Version None)
Quarter: 2009Q2

REPORT INFORMATION
  Report Type: 
  Country: None (occurrence: None)
  Receive Date: 20090618
  Receipt Date: 20090618
  Transmission Date: 20091009
  Serious: No
  Sender: FDA-Public Use
  Company Number: None

PATIENT
  Sex: Female
  Weight: 63.5036 kg

DRUGS (1)
  1. COLD EZE NASAL SPRAY WITH ZINC [Suspect]
     Indication: NASOPHARYNGITIS
     Dosage: 1 DOSE ONE TIME CAUSED DAMAGE, ONLY USED 1 TIME!
     Dates: start: 20040202, end: 20040202

REACTIONS (4)
  - ANOSMIA [None]
  - DRUG INEFFECTIVE [None]
  - MALAISE [None]
  - SINUS HEADACHE [None]
